FAERS Safety Report 8244030-0 (Version None)
Quarter: 2012Q1

REPORT INFORMATION
  Report Type: 
  Country: None (occurrence: None)
  Receive Date: 20120329
  Receipt Date: 20120322
  Transmission Date: 20120608
  Serious: Yes (Hospitalization)
  Sender: FDA-Public Use
  Company Number: SE-UCBSA-054029

PATIENT
  Age: 59 Year
  Sex: Female

DRUGS (4)
  1. TEGRETOL [Concomitant]
  2. KEPPRA [Suspect]
     Indication: PROPHYLAXIS
     Dosage: 1.5G DAILY
     Route: 048
     Dates: start: 20120123, end: 20120124
  3. TEGRETOL [Concomitant]
     Indication: PROPHYLAXIS
  4. NATRIUMKLORID [Concomitant]

REACTIONS (1)
  - RASH ERYTHEMATOUS [None]
